FAERS Safety Report 10861229 (Version 2)
Quarter: 2015Q2

REPORT INFORMATION
  Report Type: Report from Study
  Country: US (occurrence: US)
  Receive Date: 20150224
  Receipt Date: 20150417
  Transmission Date: 20150821
  Serious: Yes (Other)
  Sender: FDA-Public Use
  Company Number: PHEH2014US018170

PATIENT
  Sex: Female
  Weight: 54 kg

DRUGS (43)
  1. GLEEVEC [Suspect]
     Active Substance: IMATINIB MESYLATE
     Dosage: 0.5 MG, QD
     Route: 048
     Dates: start: 20140827
  2. GLEEVEC [Suspect]
     Active Substance: IMATINIB MESYLATE
     Dosage: 400 MG, QD
     Route: 048
  3. POTASSIUM CITRATE. [Concomitant]
     Active Substance: POTASSIUM CITRATE
     Indication: PRODUCT USED FOR UNKNOWN INDICATION
     Dosage: 1 DF, DAILY
     Route: 048
     Dates: start: 20140827
  4. CARVEDIOL [Concomitant]
     Active Substance: CARVEDILOL
     Indication: PRODUCT USED FOR UNKNOWN INDICATION
     Dosage: 1 DF, BID
     Route: 048
     Dates: start: 20140827
  5. METHOCARBAMOL. [Concomitant]
     Active Substance: METHOCARBAMOL
     Dosage: 1 DF, QD
     Route: 048
     Dates: start: 20140923
  6. DOMPERIDONE [Concomitant]
     Active Substance: DOMPERIDONE
     Indication: PRODUCT USED FOR UNKNOWN INDICATION
     Dosage: 1 DF, TID
     Route: 048
     Dates: start: 20140827
  7. GLEEVEC [Suspect]
     Active Substance: IMATINIB MESYLATE
     Dosage: 400 MG, QD
     Route: 048
     Dates: start: 20140225
  8. PRAVASTATIN SODIUM. [Concomitant]
     Active Substance: PRAVASTATIN SODIUM
     Dosage: 1 DF, QHS
     Route: 048
     Dates: start: 20140923
  9. CARVEDIOL [Concomitant]
     Active Substance: CARVEDILOL
     Dosage: 1 DF, BID
     Route: 048
     Dates: start: 20140923
  10. MIRTAZAPINE. [Concomitant]
     Active Substance: MIRTAZAPINE
     Dosage: 1 DF, QD
     Route: 048
     Dates: start: 20140923
  11. GABAPENTIN. [Concomitant]
     Active Substance: GABAPENTIN
     Dosage: 1 DF, QD
     Route: 048
     Dates: start: 20140923
  12. POTASSIUM CHLORIDE. [Concomitant]
     Active Substance: POTASSIUM CHLORIDE
     Indication: PRODUCT USED FOR UNKNOWN INDICATION
     Dosage: 1 DF, QD
     Route: 048
  13. ZOFRAN [Suspect]
     Active Substance: ONDANSETRON HYDROCHLORIDE
     Indication: VOMITING
  14. PROBIOTICS NOS [Concomitant]
     Active Substance: PROBIOTICS NOS
     Indication: PRODUCT USED FOR UNKNOWN INDICATION
     Dosage: 1 DF, QD
     Route: 048
     Dates: start: 20140827
  15. GUAIFENESIN. [Concomitant]
     Active Substance: GUAIFENESIN
     Indication: PRODUCT USED FOR UNKNOWN INDICATION
     Dosage: 1 DF, Q12H
     Route: 048
     Dates: start: 20140827
  16. PANTOPRAZOLE SODIUM [Concomitant]
     Indication: PRODUCT USED FOR UNKNOWN INDICATION
     Dosage: 1 DF, BID
     Route: 048
     Dates: start: 20140827
  17. GLEEVEC [Suspect]
     Active Substance: IMATINIB MESYLATE
     Dosage: UNK UKN, 1/2 HALF TABLET
     Route: 048
  18. STOOL SOFTENER [Concomitant]
     Active Substance: DOCUSATE CALCIUM
     Indication: PRODUCT USED FOR UNKNOWN INDICATION
     Dosage: 1 DF, BID
     Route: 048
     Dates: start: 20140827
  19. STOOL SOFTENER [Concomitant]
     Active Substance: DOCUSATE CALCIUM
     Dosage: 1 DF, BID
     Route: 048
     Dates: start: 20140923
  20. GLEEVEC [Suspect]
     Active Substance: IMATINIB MESYLATE
     Indication: CHRONIC MYELOID LEUKAEMIA
     Dosage: 400 MG, QD
     Route: 048
  21. ASPIRIN. [Concomitant]
     Active Substance: ASPIRIN
     Indication: PRODUCT USED FOR UNKNOWN INDICATION
     Dosage: 1 DF, DAILY
     Route: 048
     Dates: start: 20140827
  22. BETA CAROTENE [Concomitant]
     Indication: VISUAL IMPAIRMENT
     Dosage: 1 DF, QD
     Route: 048
     Dates: start: 20140827
  23. GLEEVEC [Suspect]
     Active Substance: IMATINIB MESYLATE
     Dosage: 200 MG, QD (1/2 TABLET)
     Route: 048
  24. PRAVASTATIN SODIUM. [Concomitant]
     Active Substance: PRAVASTATIN SODIUM
     Indication: PRODUCT USED FOR UNKNOWN INDICATION
     Dosage: 1 DF, QHS
     Route: 048
     Dates: start: 20140827
  25. BUPROBAN [Concomitant]
     Active Substance: BUPROPION HYDROCHLORIDE
     Indication: PRODUCT USED FOR UNKNOWN INDICATION
     Dosage: 1 DF, QD
     Route: 048
     Dates: start: 20140827
  26. BUPROBAN [Concomitant]
     Active Substance: BUPROPION HYDROCHLORIDE
     Dosage: 1 DF, QD
     Route: 048
     Dates: start: 20140923
  27. METHOCARBAMOL. [Concomitant]
     Active Substance: METHOCARBAMOL
     Indication: PRODUCT USED FOR UNKNOWN INDICATION
     Dosage: 1 DF, QD
     Route: 048
     Dates: start: 20140827
  28. DICYCLOMINE HCL [Concomitant]
     Active Substance: DICYCLOMINE HYDROCHLORIDE
     Dosage: 1 DF, AS DIRECTED
     Route: 048
     Dates: start: 20140923
  29. ZOFRAN [Suspect]
     Active Substance: ONDANSETRON HYDROCHLORIDE
     Indication: NAUSEA
     Route: 065
  30. POTASSIUM CITRATE. [Concomitant]
     Active Substance: POTASSIUM CITRATE
     Dosage: 1 DF, DAILY
     Route: 048
     Dates: start: 20140923
  31. LORAZEPAM. [Concomitant]
     Active Substance: LORAZEPAM
     Indication: ANXIETY
     Dosage: 1 DF, Q6-8H PRN
     Route: 048
     Dates: start: 20140827
  32. LORAZEPAM. [Concomitant]
     Active Substance: LORAZEPAM
     Dosage: 1 DF, Q6-8H PRN
     Route: 048
     Dates: start: 20140923
  33. BETA CAROTENE [Concomitant]
     Dosage: 1 DF, QD
     Route: 048
     Dates: start: 20140923
  34. PANTOPRAZOLE SODIUM [Concomitant]
     Dosage: 1 DF, BID
     Dates: start: 20140923
  35. DICYCLOMINE HCL [Concomitant]
     Active Substance: DICYCLOMINE HYDROCHLORIDE
     Indication: PRODUCT USED FOR UNKNOWN INDICATION
     Dosage: 1 DF, AS DIRECTED
     Route: 048
     Dates: start: 20140827
  36. DOMPERIDONE [Concomitant]
     Active Substance: DOMPERIDONE
     Dosage: 1 DF, TID
     Route: 048
     Dates: start: 20140923
  37. LASIX [Concomitant]
     Active Substance: FUROSEMIDE
     Indication: PRODUCT USED FOR UNKNOWN INDICATION
     Dosage: 1 DF, AS DIRECTED
     Route: 048
     Dates: start: 20140827
  38. LASIX [Concomitant]
     Active Substance: FUROSEMIDE
     Dosage: 1 DF, AS DIRECTED
     Route: 048
     Dates: start: 20140923
  39. ASPIRIN. [Concomitant]
     Active Substance: ASPIRIN
     Dosage: 1 DF, DAILY
     Route: 048
     Dates: start: 20140923
  40. PROBIOTICS NOS [Concomitant]
     Active Substance: PROBIOTICS NOS
     Dosage: 1 DF, QD
     Route: 048
     Dates: start: 20140923
  41. MIRTAZAPINE. [Concomitant]
     Active Substance: MIRTAZAPINE
     Indication: PRODUCT USED FOR UNKNOWN INDICATION
     Dosage: 1 DF, QD
     Route: 048
     Dates: start: 20140827
  42. GUAIFENESIN. [Concomitant]
     Active Substance: GUAIFENESIN
     Dosage: 1 DF, Q12H
     Route: 048
     Dates: start: 20140923
  43. GABAPENTIN. [Concomitant]
     Active Substance: GABAPENTIN
     Indication: PRODUCT USED FOR UNKNOWN INDICATION
     Dosage: 1 DF, QD
     Route: 048
     Dates: start: 20140827

REACTIONS (25)
  - Drug intolerance [Unknown]
  - Vomiting [Not Recovered/Not Resolved]
  - Malaise [Not Recovered/Not Resolved]
  - Abdominal distension [Unknown]
  - Pancreatic disorder [Unknown]
  - Mean platelet volume decreased [Unknown]
  - Headache [Unknown]
  - Haematocrit decreased [Unknown]
  - Eosinophil count increased [Unknown]
  - Constipation [Unknown]
  - Early satiety [Unknown]
  - Fatigue [Not Recovered/Not Resolved]
  - Pain [Unknown]
  - Wrong technique in drug usage process [Unknown]
  - Decreased appetite [Not Recovered/Not Resolved]
  - Hypoacusis [Unknown]
  - Post procedural complication [Unknown]
  - Gastric disorder [Unknown]
  - Red blood cell count decreased [Unknown]
  - Basophil count increased [Unknown]
  - Flatulence [Unknown]
  - Aortic valve incompetence [Unknown]
  - Nausea [Not Recovered/Not Resolved]
  - Dry skin [Not Recovered/Not Resolved]
  - Monocyte count increased [Unknown]
